FAERS Safety Report 6048147-0 (Version None)
Quarter: 2009Q1

REPORT INFORMATION
  Report Type: 
  Country: None (occurrence: None)
  Receive Date: 20090123
  Receipt Date: 20081230
  Transmission Date: 20090719
  Serious: Yes (Other)
  Sender: FDA-Public Use
  Company Number: PHHY2008FR27678

PATIENT
  Age: 75 Year
  Sex: Male
  Weight: 70 kg

DRUGS (2)
  1. ZOMETA [Suspect]
     Indication: PROSTATE CANCER METASTATIC
     Dosage: 4 MG, QMO
  2. ZOMETA [Suspect]
     Indication: METASTASES TO BONE

REACTIONS (4)
  - CONJUNCTIVAL OEDEMA [None]
  - EYELID OEDEMA [None]
  - LACRIMATION INCREASED [None]
  - OCULAR HYPERAEMIA [None]
